FAERS Safety Report 6596038-9 (Version None)
Quarter: 2010Q1

REPORT INFORMATION
  Report Type: 
  Country: None (occurrence: None)
  Receive Date: 20100223
  Receipt Date: 20100216
  Transmission Date: 20100710
  Serious: Yes (Hospitalization, Other)
  Sender: FDA-Public Use
  Company Number: HN-MILLENNIUM PHARMACEUTICALS, INC.-2010-01257

PATIENT

DRUGS (2)
  1. VELCADE [Suspect]
     Indication: MULTIPLE MYELOMA
     Dosage: 1.3 MG/M2, CYCLIC
     Route: 042
     Dates: end: 20100216
  2. DEXAMETHASONE [Concomitant]
     Indication: MULTIPLE MYELOMA
     Dosage: 20 MG, UNK
     Route: 042

REACTIONS (4)
  - EPIDERMOLYSIS [None]
  - HYPOCALCAEMIA [None]
  - MUSCLE RIGIDITY [None]
  - NEUROPATHY PERIPHERAL [None]
